FAERS Safety Report 19916359 (Version 1)
Quarter: 2021Q4

REPORT INFORMATION
  Report Type: Spontaneous
  Country: US (occurrence: US)
  Receive Date: 20211005
  Receipt Date: 20211005
  Transmission Date: 20220303
  Serious: No
  Sender: FDA-Public Use
  Company Number: US-BION-009124

PATIENT

DRUGS (1)
  1. PROGESTERONE [Suspect]
     Active Substance: PROGESTERONE
     Indication: Product used for unknown indication
     Dosage: BATCH NO:(120026D99M OR 120026099M)

REACTIONS (2)
  - Product physical issue [Unknown]
  - Muscle spasms [Recovered/Resolved]
